FAERS Safety Report 12525765 (Version 1)
Quarter: 2016Q3

REPORT INFORMATION
  Report Type: Report from Study
  Country: US (occurrence: US)
  Receive Date: 20160705
  Receipt Date: 20160705
  Transmission Date: 20161109
  Serious: Yes (Hospitalization, Other)
  Sender: FDA-Public Use
  Company Number: US-AMGEN-USASL2016085591

PATIENT
  Age: 51 Year
  Sex: Male

DRUGS (3)
  1. ENBREL [Suspect]
     Active Substance: ETANERCEPT
     Indication: PRODUCT USED FOR UNKNOWN INDICATION
     Dosage: UNK
     Route: 065
     Dates: start: 2011
  2. HUMIRA [Concomitant]
     Active Substance: ADALIMUMAB
     Dosage: UNK
  3. CIMZIA [Concomitant]
     Active Substance: CERTOLIZUMAB PEGOL
     Dosage: UNK

REACTIONS (5)
  - Back pain [Not Recovered/Not Resolved]
  - Knee arthroplasty [Unknown]
  - Arthralgia [Not Recovered/Not Resolved]
  - Spinal fusion surgery [Unknown]
  - Spinal operation [Unknown]

NARRATIVE: CASE EVENT DATE: 2014
